FAERS Safety Report 8588400-X (Version None)
Quarter: 2012Q3

REPORT INFORMATION
  Report Type: 
  Country: None (occurrence: None)
  Receive Date: 20120813
  Receipt Date: 20120808
  Transmission Date: 20120928
  Serious: Yes (Hospitalization)
  Sender: FDA-Public Use
  Company Number: US-AMGEN-USASP2012048504

PATIENT
  Age: 61 Year
  Sex: Female

DRUGS (1)
  1. ENBREL [Suspect]
     Indication: PSORIASIS
     Dosage: 50 MG, QWK
     Route: 058
     Dates: start: 20030101

REACTIONS (7)
  - PSORIATIC ARTHROPATHY [None]
  - PERICARDIAL EFFUSION [None]
  - INFECTION [None]
  - SURGERY [None]
  - PSORIASIS [None]
  - PLEURAL EFFUSION [None]
  - CARDIAC OPERATION [None]
